FAERS Safety Report 14647581 (Version 2)
Quarter: 2022Q1

REPORT INFORMATION
  Report Type: Report from Study
  Country: US (occurrence: US)
  Receive Date: 20180316
  Receipt Date: 20220218
  Transmission Date: 20220423
  Serious: No
  Sender: FDA-Public Use
  Company Number: US-009507513-1803USA005431

PATIENT
  Age: 61 Year
  Sex: Male

DRUGS (12)
  1. BELSOMRA [Suspect]
     Active Substance: SUVOREXANT
     Indication: Insomnia
     Dosage: 20MG ONCE DAILY
     Route: 048
     Dates: start: 2017
  2. AMLODIPINE [Concomitant]
     Active Substance: AMLODIPINE BESYLATE
  3. ATORVASTATIN [Concomitant]
     Active Substance: ATORVASTATIN
  4. IRBESARTAN [Concomitant]
     Active Substance: IRBESARTAN
  5. LEVOTHYROXINE SODIUM [Concomitant]
     Active Substance: LEVOTHYROXINE SODIUM
  6. METOPROLOL [Concomitant]
     Active Substance: METOPROLOL
  7. RANITIDINE [Concomitant]
     Active Substance: RANITIDINE
  8. ALPRAZOLAM [Concomitant]
     Active Substance: ALPRAZOLAM
  9. CLONAZEPAM [Concomitant]
     Active Substance: CLONAZEPAM
  10. LAMOTRIGINE [Concomitant]
     Active Substance: LAMOTRIGINE
  11. VENLAFAXINE HYDROCHLORIDE [Concomitant]
     Active Substance: VENLAFAXINE HYDROCHLORIDE
  12. QUETIAPINE FUMARATE [Concomitant]
     Active Substance: QUETIAPINE FUMARATE

REACTIONS (3)
  - Poor quality sleep [Unknown]
  - Product dose omission issue [Unknown]
  - Product dose omission issue [Unknown]

NARRATIVE: CASE EVENT DATE: 20180201
